FAERS Safety Report 8437103-0 (Version None)
Quarter: 2012Q2

REPORT INFORMATION
  Report Type: 
  Country: None (occurrence: None)
  Receive Date: 20120614
  Receipt Date: 20120517
  Transmission Date: 20120825
  Serious: Yes (Hospitalization, Other)
  Sender: FDA-Public Use
  Company Number: IT-PFIZER INC-2012103328

PATIENT
  Age: 42 Year
  Sex: Female

DRUGS (1)
  1. ALPRAZOLAM [Suspect]
     Dosage: 10MG TOTAL DOSE(20 TABS OF 0.5MG)
     Route: 048
     Dates: start: 20120423, end: 20120423

REACTIONS (6)
  - BRADYKINESIA [None]
  - INTENTIONAL OVERDOSE [None]
  - HEART RATE INCREASED [None]
  - BRADYPHRENIA [None]
  - PSYCHOMOTOR RETARDATION [None]
  - APRAXIA [None]
